FAERS Safety Report 4651482-1 (Version None)
Quarter: 2005Q2

REPORT INFORMATION
  Report Type: 
  Country: None (occurrence: None)
  Receive Date: 20050404
  Receipt Date: 20050126
  Transmission Date: 20051028
  Serious: No
  Sender: FDA-Public Use
  Company Number: US_0501110305

PATIENT
  Age: 65 Year
  Sex: Female
  Weight: 55 kg

DRUGS (4)
  1. CYMBALTA [Suspect]
     Indication: DEPRESSION
     Dosage: 60 MG
     Dates: start: 20041220
  2. CALCIUM GLUCONATE [Concomitant]
  3. SYNTHROID [Concomitant]
  4. .. [Concomitant]

REACTIONS (1)
  - BLOOD PRESSURE INCREASED [None]
